FAERS Safety Report 9139019 (Version 1)
Quarter: 2013Q1

REPORT INFORMATION
  Report Type: Spontaneous
  Country: NL (occurrence: NL)
  Receive Date: 20130305
  Receipt Date: 20130305
  Transmission Date: 20140127
  Serious: Yes (Hospitalization, Other)
  Sender: FDA-Public Use
  Company Number: NL-ELI_LILLY_AND_COMPANY-NL201212002164

PATIENT
  Age: 56 Year
  Sex: Female
  Weight: 170 kg

DRUGS (3)
  1. ZYPADHERA [Suspect]
     Dosage: 210 MG, EVERY 2 WEEKS
     Dates: start: 20120717, end: 20120814
  2. ZYPADHERA [Suspect]
     Dosage: 300 MG, EVERY 2 WEEKS
     Dates: start: 20120827, end: 20121205
  3. LORAZEPAM [Concomitant]
     Dosage: 2.5 MG, BID
     Dates: start: 20121003

REACTIONS (11)
  - Psychotic disorder [Unknown]
  - Suicide attempt [Unknown]
  - Restless legs syndrome [Recovered/Resolved]
  - Confusional state [Recovered/Resolved]
  - Dysarthria [Recovered/Resolved]
  - Somnolence [Recovered/Resolved]
  - Syncope [Recovered/Resolved]
  - Tachycardia [Recovered/Resolved]
  - Blood pressure increased [Recovered/Resolved]
  - Muscular weakness [Recovered/Resolved]
  - Drug level increased [Recovered/Resolved]
